FAERS Safety Report 13679200 (Version 4)
Quarter: 2017Q4

REPORT INFORMATION
  Report Type: Spontaneous
  Country: JP (occurrence: JP)
  Receive Date: 20170622
  Receipt Date: 20171030
  Transmission Date: 20180320
  Serious: Yes (Hospitalization)
  Sender: FDA-Public Use
  Company Number: JP-DSJP-DSJ-2017-119068

PATIENT
  Age: 84 Year
  Sex: Male

DRUGS (2)
  1. LIXIANA TABLETS [Suspect]
     Active Substance: EDOXABAN TOSYLATE
     Indication: CARDIAC VALVE DISEASE
     Dosage: 30MG/DAY
     Route: 065
  2. LIXIANA TABLETS [Suspect]
     Active Substance: EDOXABAN TOSYLATE
     Indication: CARDIAC FAILURE

REACTIONS (2)
  - Interstitial lung disease [Not Recovered/Not Resolved]
  - Off label use [Unknown]
